FAERS Safety Report 4325537-5 (Version None)
Quarter: 2004Q1

REPORT INFORMATION
  Report Type: 
  Country: None (occurrence: None)
  Receive Date: 20040324
  Receipt Date: 20040316
  Transmission Date: 20041129
  Serious: Yes (Death, Life-Threatening, Hospitalization)
  Sender: FDA-Public Use
  Company Number: ATO-04-0241

PATIENT
  Age: 76 Year
  Sex: Female
  Weight: 63.9572 kg

DRUGS (12)
  1. TRISENOX [Suspect]
     Indication: MYELODYSPLASTIC SYNDROME
     Dosage: 16 MG (0.25 MG/KG, DAILY), IVI
     Route: 042
     Dates: start: 20040308, end: 20040310
  2. AMICAR [Concomitant]
  3. FELODIPINE [Concomitant]
  4. IRBESARTAN [Concomitant]
  5. INSULIN [Concomitant]
  6. PYRIDOXINE [Concomitant]
  7. OMEPRAZOLE [Concomitant]
  8. TRAZODONE HCL [Concomitant]
  9. FERROUS SULFATE TAB [Concomitant]
  10. FLUOXETINE [Concomitant]
  11. ZOFRAN [Concomitant]
  12. OCTREOTIDE ACETATE [Concomitant]

REACTIONS (12)
  - ABDOMINAL PAIN [None]
  - BLOOD LACTIC ACID INCREASED [None]
  - BLOOD POTASSIUM DECREASED [None]
  - CARDIAC FAILURE [None]
  - CHILLS [None]
  - HYPOTENSION [None]
  - METABOLIC ACIDOSIS [None]
  - NAUSEA [None]
  - OCCULT BLOOD POSITIVE [None]
  - PYREXIA [None]
  - TACHYCARDIA [None]
  - VOMITING [None]
